FAERS Safety Report 5154148-7 (Version None)
Quarter: 2006Q4

REPORT INFORMATION
  Report Type: 
  Country: None (occurrence: None)
  Receive Date: 20061120
  Receipt Date: 20061110
  Transmission Date: 20070319
  Serious: Yes (Disabling)
  Sender: FDA-Public Use
  Company Number: FI-ABBOTT-06P-055-0350022-00

PATIENT
  Sex: Male

DRUGS (2)
  1. DEPAKINE DEPOT PROLONGED-RELEASE GRANULES [Suspect]
     Indication: BIPOLAR DISORDER
     Dates: start: 20060629, end: 20061026
  2. DEPAKINE DEPOT PROLONGED-RELEASE TABLETS [Suspect]
     Indication: BIPOLAR DISORDER
     Route: 048
     Dates: end: 20060629

REACTIONS (3)
  - DRUG LEVEL DECREASED [None]
  - GENERAL PHYSICAL HEALTH DETERIORATION [None]
  - MEDICATION RESIDUE [None]
